FAERS Safety Report 17866530 (Version 1)
Quarter: 2020Q2

REPORT INFORMATION
  Report Type: Spontaneous
  Country: FR (occurrence: FR)
  Receive Date: 20200605
  Receipt Date: 20200605
  Transmission Date: 20200714
  Serious: Yes (Other)
  Sender: FDA-Public Use
  Company Number: NVSC2020FR157059

PATIENT
  Age: 64 Year
  Sex: Male

DRUGS (1)
  1. EUCREAS [Suspect]
     Active Substance: METFORMIN HYDROCHLORIDE\VILDAGLIPTIN
     Indication: PRODUCT USED FOR UNKNOWN INDICATION
     Dosage: UNK UNK, BID, 1 TABLET
     Route: 065
     Dates: start: 201811

REACTIONS (2)
  - Respiratory disorder [Unknown]
  - Pemphigus [Unknown]

NARRATIVE: CASE EVENT DATE: 2019
